FAERS Safety Report 4810396-4 (Version None)
Quarter: 2005Q4

REPORT INFORMATION
  Report Type: 
  Country: None (occurrence: None)
  Receive Date: 20051024
  Receipt Date: 20051007
  Transmission Date: 20060501
  Serious: Yes (Death, Hospitalization)
  Sender: FDA-Public Use
  Company Number: 12560

PATIENT
  Age: 81 Year
  Sex: Male

DRUGS (2)
  1. PACLITAXEL [Suspect]
     Indication: NON-SMALL CELL LUNG CANCER
     Dosage: 330 MG/KG DAILY, IV
     Route: 042
     Dates: start: 20050915, end: 20050915
  2. CARBOPLATIN [Suspect]
     Dosage: 350 MG/KG DAILY, IV
     Route: 042
     Dates: start: 20050915, end: 20050915

REACTIONS (7)
  - CARDIO-RESPIRATORY ARREST [None]
  - CONSTIPATION [None]
  - GENERAL PHYSICAL HEALTH DETERIORATION [None]
  - HAEMOGLOBIN DECREASED [None]
  - MELAENA [None]
  - NEUTROPENIA [None]
  - PYREXIA [None]
